FAERS Safety Report 14191236 (Version 6)
Quarter: 2019Q1

REPORT INFORMATION
  Report Type: Spontaneous
  Country: US (occurrence: US)
  Receive Date: 20171115
  Receipt Date: 20190128
  Transmission Date: 20190417
  Serious: Yes (Hospitalization, Other)
  Sender: FDA-Public Use
  Company Number: US-PFIZER INC-2017486346

PATIENT
  Age: 51 Year
  Sex: Female

DRUGS (2)
  1. ELELYSO [Suspect]
     Active Substance: TALIGLUCERASE ALFA
     Dosage: UNK
  2. ELELYSO [Suspect]
     Active Substance: TALIGLUCERASE ALFA
     Indication: GAUCHER^S DISEASE TYPE I
     Dosage: UNK, EVERY TWO WEEKS

REACTIONS (8)
  - Vocal cord paralysis [Unknown]
  - Sepsis [Unknown]
  - Vocal cord polyp [Unknown]
  - Dysphonia [Unknown]
  - Pain [Recovering/Resolving]
  - Osteomyelitis [Not Recovered/Not Resolved]
  - Muscle spasms [Recovering/Resolving]
  - Bone cyst [Not Recovered/Not Resolved]

NARRATIVE: CASE EVENT DATE: 20180115
